FAERS Safety Report 8152164-4 (Version None)
Quarter: 2012Q1

REPORT INFORMATION
  Report Type: 
  Country: None (occurrence: None)
  Receive Date: 20120221
  Receipt Date: 20120217
  Transmission Date: 20120608
  Serious: Yes (Other)
  Sender: FDA-Public Use
  Company Number: US-PFIZER INC-2012043601

PATIENT
  Sex: Female
  Weight: 71.7 kg

DRUGS (2)
  1. PREMARIN [Suspect]
     Indication: HORMONE REPLACEMENT THERAPY
     Dosage: 0.625 MG, 1X/DAY
     Route: 048
     Dates: end: 20110901
  2. ZOLOFT [Concomitant]
     Indication: MENTAL DISORDER
     Dosage: UNK

REACTIONS (5)
  - IRRITABILITY [None]
  - PAIN IN EXTREMITY [None]
  - NASOPHARYNGITIS [None]
  - FEELING HOT [None]
  - HYPOTHYROIDISM [None]
